FAERS Safety Report 9358542 (Version 1)
Quarter: 2013Q2

REPORT INFORMATION
  Report Type: Spontaneous
  Country: US (occurrence: US)
  Receive Date: 20130620
  Receipt Date: 20130620
  Transmission Date: 20140414
  Serious: Yes (Hospitalization)
  Sender: FDA-Public Use
  Company Number: PHHY2013US061970

PATIENT
  Age: 57 Year
  Sex: 0

DRUGS (1)
  1. WARFARIN [Suspect]
     Indication: ATRIAL FIBRILLATION

REACTIONS (3)
  - Intracranial pressure increased [Unknown]
  - Pulmonary embolism [Unknown]
  - Cerebellar haemorrhage [Unknown]
